FAERS Safety Report 25687895 (Version 1)
Quarter: 2025Q3

REPORT INFORMATION
  Report Type: Spontaneous
  Country: US (occurrence: US)
  Receive Date: 20250817
  Receipt Date: 20250817
  Transmission Date: 20251020
  Serious: Yes (Hospitalization, Other)
  Sender: ALEXION PHARMACEUTICALS
  Company Number: US-AstraZeneca-CH-00930428A

PATIENT
  Sex: Male

DRUGS (1)
  1. BREZTRI [Suspect]
     Active Substance: BUDESONIDE\FORMOTEROL\GLYCOPYRROLATE
     Indication: Chronic obstructive pulmonary disease
     Route: 065

REACTIONS (6)
  - Pneumonia [Recovering/Resolving]
  - Dysuria [Recovering/Resolving]
  - Prostatitis [Unknown]
  - Urinary retention [Recovering/Resolving]
  - Septic shock [Unknown]
  - Toxicity to various agents [Recovering/Resolving]
